FAERS Safety Report 6075623-7 (Version None)
Quarter: 2009Q1

REPORT INFORMATION
  Report Type: 
  Country: None (occurrence: None)
  Receive Date: 20090212
  Receipt Date: 20090202
  Transmission Date: 20090719
  Serious: Yes (Other)
  Sender: FDA-Public Use
  Company Number: US-PFIZER INC-2009165143

PATIENT
  Sex: Male
  Weight: 70.76 kg

DRUGS (11)
  1. DOFETILIDE [Suspect]
     Indication: ATRIAL FIBRILLATION
     Dosage: 500 UG, 2X/DAY
     Route: 048
     Dates: start: 20060401
  2. ACIPHEX [Concomitant]
     Dosage: UNK
  3. CRESTOR [Concomitant]
     Dosage: UNK
  4. CALCITRIOL [Concomitant]
     Dosage: UNK
  5. CYMBALTA [Concomitant]
     Dosage: UNK
  6. ASPIRIN [Concomitant]
     Dosage: UNK
  7. ACTONEL [Concomitant]
     Dosage: UNK
  8. MONTELUKAST SODIUM [Concomitant]
     Dosage: UNK
  9. ADVAIR DISKUS 100/50 [Concomitant]
     Dosage: UNK
  10. COMBIVENT [Concomitant]
     Dosage: UNK
  11. SPIRIVA [Concomitant]
     Dosage: UNK

REACTIONS (1)
  - BACTERIAL INFECTION [None]
